FAERS Safety Report 5177418-5 (Version None)
Quarter: 2006Q4

REPORT INFORMATION
  Report Type: 
  Country: None (occurrence: None)
  Receive Date: 20061218
  Receipt Date: 20051004
  Transmission Date: 20070319
  Serious: Yes (Other)
  Sender: FDA-Public Use
  Company Number: US-AMGEN-US153333

PATIENT
  Age: 60 Year
  Sex: Female

DRUGS (3)
  1. ENBREL [Suspect]
     Indication: RHEUMATOID ARTHRITIS
     Dates: start: 19990101, end: 20030901
  2. METHOTREXATE [Concomitant]
     Dates: start: 19941101, end: 20010101
  3. PREDNISONE TAB [Concomitant]
     Dates: start: 19940101

REACTIONS (3)
  - HERPES ZOSTER [None]
  - PLEURAL EFFUSION [None]
  - PULMONARY GRANULOMA [None]
